FAERS Safety Report 11276864 (Version 1)
Quarter: 2015Q3

REPORT INFORMATION
  Report Type: Spontaneous
  Country: US (occurrence: None)
  Receive Date: 20150715
  Receipt Date: 20150715
  Transmission Date: 20151125
  Serious: No
  Sender: FDA-Public Use
  Company Number: None

PATIENT
  Age: 31 Year
  Sex: Female
  Weight: 55 kg

DRUGS (2)
  1. HYDROCORTISONE ACETATE. [Suspect]
     Active Substance: HYDROCORTISONE ACETATE
     Indication: PRURITUS
     Dosage: APPLIED JUST A THIN LAYER, AT BEDTIME, APPLIED TO A SURFACE, USUALLY THE SKIN
  2. TOPICAL LOTRIMIN [Concomitant]

REACTIONS (10)
  - Swelling face [None]
  - Oedema peripheral [None]
  - Heart rate irregular [None]
  - Respiratory disorder [None]
  - Chest discomfort [None]
  - Diarrhoea [None]
  - Pruritus [None]
  - Dyspnoea [None]
  - Urticaria [None]
  - Pain [None]

NARRATIVE: CASE EVENT DATE: 20150709
